FAERS Safety Report 8017262-4 (Version None)
Quarter: 2012Q1

REPORT INFORMATION
  Report Type: 
  Country: None (occurrence: None)
  Receive Date: 20120102
  Receipt Date: 20111221
  Transmission Date: 20120608
  Serious: Yes (Hospitalization, Other)
  Sender: FDA-Public Use
  Company Number: PHEH2011US010127

PATIENT
  Sex: Female
  Weight: 47.2 kg

DRUGS (20)
  1. LOVENOX [Concomitant]
  2. PROAMATINE [Concomitant]
     Dosage: 2 DF, EVERY 6 HOURS
  3. COUMADIN [Concomitant]
     Indication: ATRIAL FIBRILLATION
     Dosage: 6 MG, DAILY (ON TUESDAY AND THURSDAY)
  4. COUMADIN [Concomitant]
     Dosage: 4 MG, (ON SUNDAY, MONDAY, WEDNESDAY, FRIDAY AND SATURDAY)
     Route: 048
  5. GLEEVEC [Suspect]
     Dosage: 200 MG, DAILY
  6. LASIX [Concomitant]
     Indication: FLUID RETENTION
     Route: 042
  7. PRINIVIL [Concomitant]
     Dosage: 1 DF, DAILY
     Route: 048
  8. LASIX [Concomitant]
     Dosage: 20 MG, PRN
     Route: 048
  9. ZOFRAN [Concomitant]
     Dosage: 4 MG, 3 TIMES DAILY AS NEEDED.
     Route: 048
  10. LEVOTHYROXINE SODIUM [Concomitant]
     Dosage: 100 UG, EVERY MORNING
     Route: 048
  11. CALCIUM WITH VITAMIN D [Concomitant]
     Dosage: 1 DF (600/400 MG), BID
     Route: 048
  12. GLEEVEC [Suspect]
     Indication: CHRONIC MYELOID LEUKAEMIA
     Dosage: 400 MG, DAILY
     Route: 048
     Dates: start: 20110831
  13. GLEEVEC [Suspect]
     Dosage: 400 MG, DAILY
     Route: 048
  14. THERAPEUTIC-M [Concomitant]
     Dosage: 1 DF, DAILY
     Route: 048
  15. MEXITIL [Concomitant]
     Dosage: 200 MG, TID
     Route: 048
  16. NITROSTAT [Concomitant]
     Dosage: 0.4 MG, PRN
     Route: 060
  17. LIORESAL [Concomitant]
     Dosage: 20 MG, TID
     Route: 048
  18. FERROUS SULFATE TAB [Concomitant]
     Dosage: 325 MG, TID
     Route: 048
  19. ZESTRIL [Concomitant]
     Dosage: 1 DF, DAILY
  20. LOPRESSOR [Concomitant]
     Dosage: 1 DF, EVERY 12 HOURS
     Route: 048

REACTIONS (14)
  - INTERNATIONAL NORMALISED RATIO DECREASED [None]
  - RENAL FAILURE ACUTE [None]
  - HYPOXIA [None]
  - ACUTE RESPIRATORY FAILURE [None]
  - OEDEMA [None]
  - DYSPNOEA [None]
  - HYPOTENSION [None]
  - OEDEMA PERIPHERAL [None]
  - RENAL IMPAIRMENT [None]
  - PULMONARY EMBOLISM [None]
  - PULMONARY OEDEMA [None]
  - ANAEMIA [None]
  - CARDIAC FAILURE CONGESTIVE [None]
  - WEIGHT DECREASED [None]
